FAERS Safety Report 26045002 (Version 1)
Quarter: 2025Q4

REPORT INFORMATION
  Report Type: Report from Study
  Country: US (occurrence: US)
  Receive Date: 20251114
  Receipt Date: 20251114
  Transmission Date: 20260117
  Serious: Yes (Other)
  Sender: GILEAD
  Company Number: US-GILEAD-2025-0736400

PATIENT
  Age: 69 Year
  Sex: Female

DRUGS (1)
  1. SELADELPAR [Suspect]
     Active Substance: SELADELPAR
     Indication: Primary biliary cholangitis
     Dosage: 10 MG CAPSULE BY MOUTH ONCE DAILY
     Route: 048
     Dates: start: 20251020

REACTIONS (2)
  - Knee arthroplasty [Unknown]
  - Intentional dose omission [Recovered/Resolved]
